FAERS Safety Report 8831581 (Version 3)
Quarter: 2013Q3

REPORT INFORMATION
  Report Type: Spontaneous
  Country: US (occurrence: US)
  Receive Date: 20121009
  Receipt Date: 20130923
  Transmission Date: 20140515
  Serious: No
  Sender: FDA-Public Use
  Company Number: US-ASTRAZENECA-2012SE76167

PATIENT
  Age: 72 Year
  Sex: Female
  Weight: 73.5 kg

DRUGS (13)
  1. PULMICORT FLEXHALER [Suspect]
     Indication: ASTHMA
     Dosage: 90 MCG 1 PUFF DAILY
     Route: 055
     Dates: start: 2008, end: 2010
  2. PULMICORT FLEXHALER [Suspect]
     Indication: ASTHMA
     Dosage: 90 MCG 2 PUFFS TWO TIMES A DAY
     Route: 055
     Dates: start: 20120903
  3. PULMICORT FLEXHALER [Suspect]
     Indication: ASTHMA
     Dosage: 360 MCG BID
     Route: 055
  4. PULMICORT FLEXHALER [Suspect]
     Indication: ASTHMA
     Dosage: 180 MCG, 1 PUFF, BID
     Route: 055
  5. PULMICORT FLEXHALER [Suspect]
     Indication: ASTHMA
     Dosage: 2 PUFFS, BID
     Route: 055
  6. PULMICORT FLEXHALER [Suspect]
     Indication: ASTHMA
     Dosage: 180 MCG 2 PUFFS BID
     Route: 055
     Dates: start: 20130616
  7. PULMICORT FLEXHALER [Suspect]
     Indication: ASTHMA
     Route: 055
  8. LISINOPRIL [Suspect]
     Indication: HYPERTENSION
     Route: 065
  9. SINGULAIR [Concomitant]
     Indication: ASTHMA
     Route: 048
     Dates: start: 20120826
  10. LOSARTAN [Concomitant]
     Indication: HYPERTENSION
     Route: 048
  11. LIPITOR [Concomitant]
     Indication: BLOOD CHOLESTEROL ABNORMAL
     Route: 048
  12. AUGMENTIN [Concomitant]
     Indication: ANIMAL BITE
     Dosage: 875/12 5 MG BID
     Route: 048
  13. UNKNOWN MEDICATION [Concomitant]
     Indication: HEART RATE IRREGULAR

REACTIONS (13)
  - Chest discomfort [Unknown]
  - Heart rate irregular [Unknown]
  - Viral infection [Unknown]
  - Animal bite [Unknown]
  - Blood cholesterol increased [Unknown]
  - Asthma [Unknown]
  - Asthma [Unknown]
  - Productive cough [Unknown]
  - Dyspnoea [Unknown]
  - Cough [Unknown]
  - Drug dose omission [Unknown]
  - Off label use [Recovered/Resolved]
  - Intentional drug misuse [Unknown]
